FAERS Safety Report 9912802 (Version 1)
Quarter: 2014Q1

REPORT INFORMATION
  Report Type: Spontaneous
  Country: US (occurrence: US)
  Receive Date: 20140220
  Receipt Date: 20140220
  Transmission Date: 20141002
  Serious: No
  Sender: FDA-Public Use
  Company Number: US-PFIZER INC-2014047613

PATIENT
  Age: 66 Year
  Sex: Female
  Weight: 72.6 kg

DRUGS (2)
  1. GABAPENTIN [Suspect]
     Dosage: UNK
  2. GRALISE [Suspect]
     Dosage: 1800 MG, 1X/DAY
     Route: 048

REACTIONS (1)
  - Drug ineffective [Unknown]
